FAERS Safety Report 8231012-8 (Version None)
Quarter: 2012Q1

REPORT INFORMATION
  Report Type: 
  Country: None (occurrence: None)
  Receive Date: 20120323
  Receipt Date: 20120319
  Transmission Date: 20120608
  Serious: Yes (Hospitalization, Other)
  Sender: FDA-Public Use
  Company Number: US-PFIZER INC-2010094474

PATIENT
  Sex: Male
  Weight: 87.982 kg

DRUGS (6)
  1. SUTENT [Suspect]
     Indication: RENAL CANCER
     Dosage: 25 MG, 1X/DAY
     Route: 048
     Dates: start: 20100624
  2. SUTENT [Suspect]
     Indication: METASTATIC RENAL CELL CARCINOMA
     Dosage: 25 MG, DAILY 28 DAYS OFF 14 DAYS
     Route: 048
     Dates: start: 20100501
  3. TYLENOL [Concomitant]
     Dosage: UNK
  4. ATENOLOL [Concomitant]
     Dosage: 25 MG, UNK
  5. SYNTHROID [Concomitant]
     Indication: THYROIDECTOMY
     Dosage: 0.175 MG, UNK
  6. SUTENT [Suspect]
     Dosage: 50 MG, 1X/DAY, 4 WEEKS ON/2 WEEKS OFF
     Route: 048
     Dates: start: 20100706

REACTIONS (19)
  - SUBCLAVIAN ARTERY THROMBOSIS [None]
  - WEIGHT DECREASED [None]
  - HAEMORRHAGE [None]
  - LOCALISED INFECTION [None]
  - DIARRHOEA [None]
  - ANORECTAL DISCOMFORT [None]
  - DRUG INTOLERANCE [None]
  - RECTAL HAEMORRHAGE [None]
  - HYPOGEUSIA [None]
  - FATIGUE [None]
  - OEDEMA PERIPHERAL [None]
  - SKIN IRRITATION [None]
  - BLISTER [None]
  - BLOOD PRESSURE ABNORMAL [None]
  - CELLULITIS STAPHYLOCOCCAL [None]
  - DECREASED APPETITE [None]
  - FLUID RETENTION [None]
  - CONSTIPATION [None]
  - THROMBOSIS [None]
